FAERS Safety Report 11868973 (Version 1)
Quarter: 2015Q4

REPORT INFORMATION
  Report Type: Spontaneous
  Country: US (occurrence: US)
  Receive Date: 20151225
  Receipt Date: 20151225
  Transmission Date: 20160305
  Serious: Yes (Other)
  Sender: FDA-Public Use
  Company Number: US-JNJFOC-20151210433

PATIENT
  Age: 5 Year
  Sex: Male
  Weight: 16.78 kg

DRUGS (3)
  1. CHILDRENS BENADRYL ALLERGY [Suspect]
     Active Substance: DIPHENHYDRAMINE HYDROCHLORIDE
     Indication: HYPERSENSITIVITY
     Dosage: DOSE: 1 1/4 TSP AT ONE TIME
     Route: 048
     Dates: start: 20151128
  2. CHILDRENS BENADRYL ALLERGY [Suspect]
     Active Substance: DIPHENHYDRAMINE HYDROCHLORIDE
     Indication: RASH
     Dosage: DOSE: 1 1/4 TSP AT ONE TIME
     Route: 048
     Dates: start: 20151128
  3. CHILDRENS BENADRYL ITCH COOLING [Suspect]
     Active Substance: CAMPHOR (SYNTHETIC)
     Indication: RASH
     Dosage: APPLIED LIBERALLY
     Route: 061
     Dates: start: 20151128, end: 20151128

REACTIONS (2)
  - Drug ineffective [Unknown]
  - Anaphylactic reaction [Recovered/Resolved]

NARRATIVE: CASE EVENT DATE: 20151128
